FAERS Safety Report 19583236 (Version 6)
Quarter: 2021Q4

REPORT INFORMATION
  Report Type: Spontaneous
  Country: US (occurrence: US)
  Receive Date: 20210720
  Receipt Date: 20211018
  Transmission Date: 20220303
  Serious: Yes (Death, Other)
  Sender: FDA-Public Use
  Company Number: US-ROCHE-2871657

PATIENT
  Sex: Female

DRUGS (2)
  1. XELODA [Suspect]
     Active Substance: CAPECITABINE
     Indication: Breast cancer metastatic
     Route: 065
  2. TUKYSA [Suspect]
     Active Substance: TUCATINIB
     Indication: Breast cancer metastatic
     Route: 065
     Dates: start: 20210512, end: 20210524

REACTIONS (9)
  - Colitis [Recovered/Resolved]
  - Pneumonia aspiration [Recovering/Resolving]
  - Fatigue [Recovered/Resolved]
  - Pyrexia [Recovered/Resolved]
  - Blood sodium decreased [Recovered/Resolved]
  - Nausea [Recovering/Resolving]
  - Vomiting [Recovering/Resolving]
  - Blood potassium decreased [Recovering/Resolving]
  - Death [Fatal]
